FAERS Safety Report 4504844-7 (Version None)
Quarter: 2004Q3

REPORT INFORMATION
  Report Type: 
  Country: None (occurrence: None)
  Receive Date: 20040927
  Receipt Date: 20040811
  Transmission Date: 20050211
  Serious: No
  Sender: FDA-Public Use
  Company Number: USA040875241

PATIENT
  Age: 7 Year
  Sex: Male

DRUGS (1)
  1. STRATTERA [Suspect]
     Indication: ATTENTION DEFICIT/HYPERACTIVITY DISORDER
     Dosage: 50 MG/1 DAY

REACTIONS (5)
  - DRUG INEFFECTIVE [None]
  - IMPULSIVE BEHAVIOUR [None]
  - PSYCHOMOTOR HYPERACTIVITY [None]
  - SEDATION [None]
  - STOMACH DISCOMFORT [None]
